FAERS Safety Report 11625776 (Version 5)
Quarter: 2016Q3

REPORT INFORMATION
  Report Type: Spontaneous
  Country: US (occurrence: US)
  Receive Date: 20151013
  Receipt Date: 20160803
  Transmission Date: 20161109
  Serious: No
  Sender: FDA-Public Use
  Company Number: US-PFIZER INC-2015326310

PATIENT
  Age: 68 Year
  Sex: Female

DRUGS (3)
  1. IBRANCE [Suspect]
     Active Substance: PALBOCICLIB
     Dosage: 125 MG, UNK
     Dates: start: 20160601
  2. IBRANCE [Suspect]
     Active Substance: PALBOCICLIB
     Dosage: 125 MG, UNK
     Dates: start: 20150529, end: 20151204
  3. LETROZOLE. [Suspect]
     Active Substance: LETROZOLE
     Dosage: UNK

REACTIONS (10)
  - Dry skin [Unknown]
  - Insomnia [Unknown]
  - Nausea [Unknown]
  - Fatigue [Unknown]
  - Influenza [Unknown]
  - Constipation [Unknown]
  - Anxiety [Unknown]
  - Diarrhoea [Unknown]
  - Arthralgia [Unknown]
  - Skin discolouration [Unknown]
